FAERS Safety Report 5494861-5 (Version None)
Quarter: 2007Q4

REPORT INFORMATION
  Report Type: 
  Country: None (occurrence: None)
  Receive Date: 20071022
  Receipt Date: 20071016
  Transmission Date: 20080405
  Serious: Yes (Hospitalization)
  Sender: FDA-Public Use
  Company Number: 2007BI012280

PATIENT
  Age: 27 Year
  Sex: Female
  Weight: 78 kg

DRUGS (1)
  1. AVONEX [Suspect]
     Indication: MULTIPLE SCLEROSIS
     Dosage: 30 UG;QW;IM
     Route: 030
     Dates: start: 20070427, end: 20070603

REACTIONS (3)
  - AUTOIMMUNE HEPATITIS [None]
  - HEPATITIS [None]
  - INFLUENZA LIKE ILLNESS [None]
